FAERS Safety Report 7094567-5 (Version None)
Quarter: 2010Q4

REPORT INFORMATION
  Report Type: 
  Country: None (occurrence: None)
  Receive Date: 20101110
  Receipt Date: 20101108
  Transmission Date: 20110411
  Serious: Yes (Other)
  Sender: FDA-Public Use
  Company Number: US-PFIZER INC-2010143311

PATIENT
  Sex: Female
  Weight: 43.1 kg

DRUGS (6)
  1. ANTIVERT [Suspect]
     Indication: MENIERE'S DISEASE
     Dosage: 25 MG, 3X/DAY
     Route: 048
     Dates: start: 20040101
  2. ANTIVERT [Suspect]
     Dosage: 50 MG, 3X/DAY
     Route: 048
  3. COZAAR [Concomitant]
     Dosage: UNK
  4. RANITIDINE [Concomitant]
     Dosage: UNK
  5. DIAZEPAM [Concomitant]
     Dosage: UNK
  6. LOVASTATIN [Concomitant]
     Dosage: UNK

REACTIONS (3)
  - ANAEMIA [None]
  - COELIAC DISEASE [None]
  - MENIERE'S DISEASE [None]
